FAERS Safety Report 14952597 (Version 1)
Quarter: 2018Q2

REPORT INFORMATION
  Report Type: Spontaneous
  Country: US (occurrence: US)
  Receive Date: 20180530
  Receipt Date: 20180530
  Transmission Date: 20180711
  Serious: No
  Sender: FDA-Public Use
  Company Number: US-PFIZER INC-2018218929

PATIENT
  Age: 70 Year
  Sex: Female

DRUGS (1)
  1. ADVIL LIQUI-GELS [Suspect]
     Active Substance: IBUPROFEN
     Dosage: UNK (4 LIQUIGELS AT 4:00 PM LAST NIGHT, AND 4 MORE LIQUIGELS THIS MORNING AT 6:00 AM.)

REACTIONS (6)
  - Nausea [Unknown]
  - Abdominal pain upper [Unknown]
  - Balance disorder [Unknown]
  - Dizziness [Unknown]
  - Overdose [Unknown]
  - Eye disorder [Unknown]

NARRATIVE: CASE EVENT DATE: 20180525
